FAERS Safety Report 8593453-9 (Version None)
Quarter: 2012Q3

REPORT INFORMATION
  Report Type: 
  Country: None (occurrence: None)
  Receive Date: 20120814
  Receipt Date: 20120706
  Transmission Date: 20120928
  Serious: No
  Sender: FDA-Public Use
  Company Number: US-ASTRAZENECA-2012SE46546

PATIENT
  Age: 47 Year
  Sex: Male
  Weight: 86.2 kg

DRUGS (5)
  1. WARFARIN SODIUM [Concomitant]
     Indication: PULMONARY EMBOLISM
  2. NEXIUM [Suspect]
     Indication: GASTROOESOPHAGEAL REFLUX DISEASE
     Route: 048
  3. GABAPENTIN [Concomitant]
     Indication: PAIN
  4. FLUOXETINE HCL [Concomitant]
     Indication: DEPRESSION
  5. METOPROLOL [Concomitant]
     Indication: HYPERTENSION

REACTIONS (2)
  - DRUG INEFFECTIVE [None]
  - OFF LABEL USE [None]
